FAERS Safety Report 8328341-6 (Version None)
Quarter: 2012Q2

REPORT INFORMATION
  Report Type: 
  Country: None (occurrence: None)
  Receive Date: 20120430
  Receipt Date: 20120416
  Transmission Date: 20120825
  Serious: Yes (Hospitalization)
  Sender: FDA-Public Use
  Company Number: AUR-APL-2012-01798

PATIENT
  Age: 76 Year
  Sex: Female
  Weight: 55 kg

DRUGS (7)
  1. RAMIPRIL [Suspect]
     Indication: PRODUCT USED FOR UNKNOWN INDICATION
     Dosage: 2.5 MG (2.5 MG, 1 IN 1 D), ORAL
     Route: 048
     Dates: end: 20120305
  2. ASPIRIN [Concomitant]
  3. LANSOPRAZOLE [Concomitant]
  4. SERETIDE (SERETIDE) [Concomitant]
  5. SPIRIVA [Concomitant]
  6. CIPROFLOXACIN [Suspect]
     Indication: LIVER ABSCESS
     Dosage: 1500 MG (750 G, 2 IN 1 D), ORAL
     Route: 048
     Dates: start: 20120216, end: 20120305
  7. FUROSEMIDE [Concomitant]

REACTIONS (2)
  - RENAL FAILURE ACUTE [None]
  - DEHYDRATION [None]
